FAERS Safety Report 4791421-6 (Version None)
Quarter: 2005Q4

REPORT INFORMATION
  Report Type: 
  Country: None (occurrence: None)
  Receive Date: 20051007
  Receipt Date: 20050623
  Transmission Date: 20060501
  Serious: Yes (Hospitalization)
  Sender: FDA-Public Use
  Company Number: US-MERCK-0506USA03509

PATIENT
  Age: 67 Year
  Sex: Female

DRUGS (6)
  1. ZETIA [Suspect]
     Indication: HYPERCHOLESTEROLAEMIA
     Route: 048
     Dates: start: 20041101, end: 20050616
  2. CRESTOR [Concomitant]
     Route: 065
     Dates: start: 20031101
  3. CRESTOR [Concomitant]
     Route: 065
     Dates: end: 20050616
  4. CRESTOR [Concomitant]
     Route: 065
     Dates: start: 20050821
  5. TRICOR [Concomitant]
     Route: 065
     Dates: start: 20031101, end: 20050616
  6. ACTOS [Concomitant]
     Route: 065

REACTIONS (3)
  - BLOOD CREATININE INCREASED [None]
  - BLOOD UREA INCREASED [None]
  - RHABDOMYOLYSIS [None]
